FAERS Safety Report 24933908 (Version 1)
Quarter: 2025Q1

REPORT INFORMATION
  Report Type: Report from Study
  Country: MY (occurrence: MY)
  Receive Date: 20250206
  Receipt Date: 20250206
  Transmission Date: 20250408
  Serious: Yes (Death, Other)
  Sender: EXELIXIS
  Company Number: MY-IPSEN Group, Research and Development-2024-05554

PATIENT
  Age: 35 Year
  Sex: Female
  Weight: 50 kg

DRUGS (1)
  1. CABOMETYX [Suspect]
     Active Substance: CABOZANTINIB S-MALATE
     Indication: Renal cell carcinoma
     Dosage: 40 MG, QD
     Route: 048
     Dates: start: 20240325, end: 20240330

REACTIONS (1)
  - Renal cell carcinoma stage IV [Fatal]
